FAERS Safety Report 8253988-5 (Version None)
Quarter: 2012Q2

REPORT INFORMATION
  Report Type: 
  Country: None (occurrence: None)
  Receive Date: 20120402
  Receipt Date: 20120319
  Transmission Date: 20120825
  Serious: No
  Sender: FDA-Public Use
  Company Number: US-AMGEN-USASP2012017561

PATIENT
  Age: 36 Year
  Sex: Female

DRUGS (7)
  1. PRILOSEC [Concomitant]
     Dosage: UNK
  2. SYNTHROID [Concomitant]
  3. CYMBALTA [Concomitant]
  4. ORACEA [Concomitant]
  5. ENBREL [Suspect]
     Indication: ANKYLOSING SPONDYLITIS
     Dosage: 50 MG, QWK
     Dates: start: 20110601
  6. VOLTAREN [Concomitant]
     Dosage: 2 MG, UNK
  7. VITAMIN D [Concomitant]

REACTIONS (2)
  - NIGHT SWEATS [None]
  - ALOPECIA [None]
